FAERS Safety Report 9697441 (Version 1)
Quarter: 2013Q4

REPORT INFORMATION
  Report Type: Spontaneous
  Country: US (occurrence: None)
  Receive Date: 20131119
  Receipt Date: 20131119
  Transmission Date: 20140711
  Serious: No
  Sender: FDA-Public Use
  Company Number: None

PATIENT
  Age: 56 Year
  Sex: Female
  Weight: 63.5 kg

DRUGS (1)
  1. CYMBALTA [Suspect]
     Indication: FIBROMYALGIA
     Route: 048
     Dates: start: 20130201, end: 20131111

REACTIONS (10)
  - Chromaturia [None]
  - Dizziness [None]
  - Gait disturbance [None]
  - Insomnia [None]
  - Nasal discomfort [None]
  - Pain [None]
  - Pain in extremity [None]
  - Blister [None]
  - Fibromyalgia [None]
  - Blood pressure increased [None]
